FAERS Safety Report 5210086-2 (Version None)
Quarter: 2006Q4

REPORT INFORMATION
  Report Type: 
  Country: None (occurrence: None)
  Receive Date: 20061103
  Receipt Date: 20060725
  Transmission Date: 20070319
  Serious: Yes (Other)
  Sender: FDA-Public Use
  Company Number: 457168

PATIENT
  Age: 85 Year
  Sex: Female

DRUGS (8)
  1. BONIVA [Suspect]
     Indication: OSTEOPOROSIS
     Dosage: 3 MG
     Dates: start: 20060720, end: 20060720
  2. PROTONIX [Concomitant]
  3. GLUCOPHAGE [Concomitant]
  4. DIOVAN [Concomitant]
  5. HYDROCHLOROTHIAZIDE [Concomitant]
  6. VYTORIN [Concomitant]
  7. CENTRUM (MINERALS NOS/MULTIVITIAMIN NOS) [Concomitant]
  8. ASPIRIN [Concomitant]

REACTIONS (5)
  - ERYTHEMA [None]
  - FATIGUE [None]
  - HYPOTENSION [None]
  - PYREXIA [None]
  - SWELLING [None]
